FAERS Safety Report 19461375 (Version 3)
Quarter: 2021Q3

REPORT INFORMATION
  Report Type: Spontaneous
  Country: PT (occurrence: PT)
  Receive Date: 20210625
  Receipt Date: 20210709
  Transmission Date: 20211014
  Serious: Yes (Other)
  Sender: FDA-Public Use
  Company Number: PT-HIKMA PHARMACEUTICALS USA INC.-PT-H14001-21-02958

PATIENT
  Age: 77 Year
  Sex: Female

DRUGS (2)
  1. METHYLPREDNISOLONE. [Suspect]
     Active Substance: METHYLPREDNISOLONE
     Indication: BREAST CANCER
     Dosage: PULSE THERAPY
     Route: 042
     Dates: start: 20180523, end: 20180525
  2. PREDNISOLONE. [Suspect]
     Active Substance: PREDNISOLONE
     Indication: BREAST CANCER
     Route: 048
     Dates: start: 20180526

REACTIONS (2)
  - Hypofibrinogenaemia [Recovered/Resolved]
  - Thrombocytopenia [Recovered/Resolved]

NARRATIVE: CASE EVENT DATE: 20180601
